FAERS Safety Report 13014283 (Version 2)
Quarter: 2017Q1

REPORT INFORMATION
  Report Type: Report from Study
  Country: JP (occurrence: JP)
  Receive Date: 20161209
  Receipt Date: 20170217
  Transmission Date: 20170428
  Serious: Yes (Hospitalization, Other)
  Sender: FDA-Public Use
  Company Number: PHHY2011JP103256

PATIENT
  Age: 51 Year
  Sex: Female
  Weight: 43 kg

DRUGS (93)
  1. CERTICAN [Suspect]
     Active Substance: EVEROLIMUS
     Dosage: 0.75 MG, UNK
     Route: 048
     Dates: start: 20110524, end: 20110524
  2. CERTICAN [Suspect]
     Active Substance: EVEROLIMUS
     Dosage: 2.25 MG, QD
     Route: 048
     Dates: start: 20110903, end: 20111124
  3. CERTICAN [Suspect]
     Active Substance: EVEROLIMUS
     Dosage: 4 MG, QD
     Route: 048
     Dates: start: 20130329, end: 20130517
  4. PREDONINE [Suspect]
     Active Substance: PREDNISOLONE
     Dosage: 20 MG, UNK
     Route: 048
     Dates: start: 20110905, end: 20110908
  5. PREDONINE [Suspect]
     Active Substance: PREDNISOLONE
     Dosage: 2.5 MG, UNK
     Route: 048
     Dates: start: 20140502, end: 20140821
  6. THYRADIN S [Concomitant]
     Active Substance: LEVOTHYROXINE SODIUM
     Dosage: 50 UG, UNK
     Route: 048
     Dates: start: 20130503
  7. CERTICAN [Suspect]
     Active Substance: EVEROLIMUS
     Indication: HEART TRANSPLANT
     Dosage: 1 MG, UNK
     Route: 048
     Dates: start: 20110405, end: 20110409
  8. CERTICAN [Suspect]
     Active Substance: EVEROLIMUS
     Dosage: 1.25 MG, UNK
     Route: 048
     Dates: start: 20110530, end: 20110606
  9. CERTICAN [Suspect]
     Active Substance: EVEROLIMUS
     Dosage: 2.5 MG, QD
     Route: 048
     Dates: start: 20120322, end: 20120823
  10. CERTICAN [Suspect]
     Active Substance: EVEROLIMUS
     Dosage: 4.75 MG, QD
     Route: 048
     Dates: start: 20130824, end: 20130905
  11. CERTICAN [Suspect]
     Active Substance: EVEROLIMUS
     Dosage: 0.5 MG, UNK
     Route: 048
     Dates: end: 20150409
  12. CERTICAN [Suspect]
     Active Substance: EVEROLIMUS
     Dosage: 1 MG, UNK
     Route: 048
     Dates: start: 20150415, end: 20150417
  13. PREDONINE [Suspect]
     Active Substance: PREDNISOLONE
     Dosage: 22.5 MG, UNK
     Route: 048
     Dates: start: 20110510, end: 20110510
  14. PREDONINE [Suspect]
     Active Substance: PREDNISOLONE
     Dosage: 10 MG, UNK
     Route: 048
     Dates: start: 20120420, end: 20121220
  15. PREDONINE [Suspect]
     Active Substance: PREDNISOLONE
     Dosage: 7.5 MG, UNK
     Route: 048
     Dates: start: 20121221, end: 20130531
  16. PREDONINE [Suspect]
     Active Substance: PREDNISOLONE
     Dosage: 5 MG, UNK
     Route: 048
     Dates: start: 20130601, end: 20140501
  17. PROGRAF [Suspect]
     Active Substance: TACROLIMUS\TACROLIMUS ANHYDROUS
     Dosage: 2.7 MG, UNK
     Route: 048
     Dates: start: 20140515, end: 20141009
  18. PROGRAF [Suspect]
     Active Substance: TACROLIMUS\TACROLIMUS ANHYDROUS
     Dosage: 2.4 MG, UNK
     Route: 048
     Dates: start: 20141010, end: 20141030
  19. PROGRAF [Suspect]
     Active Substance: TACROLIMUS\TACROLIMUS ANHYDROUS
     Dosage: 2.2 MG, UNK
     Route: 048
     Dates: start: 20150306
  20. PROGRAF [Suspect]
     Active Substance: TACROLIMUS\TACROLIMUS ANHYDROUS
     Dosage: 1.4 MG, UNK
     Route: 048
     Dates: start: 20150413, end: 20150506
  21. PROGRAF [Suspect]
     Active Substance: TACROLIMUS\TACROLIMUS ANHYDROUS
     Dosage: 1.2 MG, UNK
     Route: 048
     Dates: start: 20150507
  22. CERTICAN [Suspect]
     Active Substance: EVEROLIMUS
     Dosage: 2.25 MG, QD
     Route: 048
     Dates: start: 20120113, end: 20120321
  23. CERTICAN [Suspect]
     Active Substance: EVEROLIMUS
     Dosage: 2.75 MG, QD
     Route: 048
     Dates: start: 20120824, end: 20121108
  24. CERTICAN [Suspect]
     Active Substance: EVEROLIMUS
     Dosage: 3.25 MG, QD
     Route: 048
     Dates: start: 20121221, end: 20130110
  25. CERTICAN [Suspect]
     Active Substance: EVEROLIMUS
     Dosage: 3.75 MG, QD
     Route: 048
     Dates: start: 20130301, end: 20130328
  26. CERTICAN [Suspect]
     Active Substance: EVEROLIMUS
     Dosage: 0.75 MG, QD
     Route: 048
     Dates: start: 20110524, end: 20110524
  27. CERTICAN [Suspect]
     Active Substance: EVEROLIMUS
     Dosage: 2 MG, QD
     Route: 048
     Dates: start: 20110831, end: 20110902
  28. PREDONINE [Suspect]
     Active Substance: PREDNISOLONE
     Dosage: 15 MG, UNK
     Route: 048
     Dates: start: 20110807, end: 20110823
  29. PREDONINE [Suspect]
     Active Substance: PREDNISOLONE
     Dosage: 15 MG, UNK
     Route: 048
     Dates: start: 20110909, end: 20111122
  30. PROGRAF [Suspect]
     Active Substance: TACROLIMUS\TACROLIMUS ANHYDROUS
     Dosage: 1.4 MG, UNK
     Route: 048
     Dates: start: 20150410, end: 20150410
  31. NORVASC [Concomitant]
     Active Substance: AMLODIPINE BESYLATE
     Indication: HYPERTENSION
     Dosage: 2.5 MG, UNK
     Route: 048
     Dates: start: 20110503
  32. FLUITRAN [Concomitant]
     Active Substance: TRICHLORMETHIAZIDE
     Indication: POLYURIA
     Dosage: 1 MG, UNK
     Route: 048
  33. THYRADIN S [Concomitant]
     Active Substance: LEVOTHYROXINE SODIUM
     Dosage: 100 UG, UNK
     Route: 048
  34. VOGLIBOSE [Concomitant]
     Active Substance: VOGLIBOSE
     Indication: PRODUCT USED FOR UNKNOWN INDICATION
     Dosage: 0.6 MG, UNK
     Route: 048
     Dates: start: 20110727, end: 20110906
  35. CERTICAN [Suspect]
     Active Substance: EVEROLIMUS
     Dosage: 2 MG, QD
     Route: 048
     Dates: start: 20111125, end: 20120112
  36. CERTICAN [Suspect]
     Active Substance: EVEROLIMUS
     Dosage: 1 MG, QD
     Route: 048
     Dates: start: 20110405, end: 20110409
  37. CERTICAN [Suspect]
     Active Substance: EVEROLIMUS
     Dosage: 1 MG, QD
     Route: 048
     Dates: start: 20110525, end: 20110530
  38. CERTICAN [Suspect]
     Active Substance: EVEROLIMUS
     Dosage: 1.75 MG, QD
     Route: 055
     Dates: start: 20110826, end: 20110830
  39. CERTICAN [Suspect]
     Active Substance: EVEROLIMUS
     Dosage: 4.5 MG, QD
     Route: 048
     Dates: start: 20130906, end: 20140306
  40. CERTICAN [Suspect]
     Active Substance: EVEROLIMUS
     Dosage: 4.75 MG, QD
     Route: 048
     Dates: start: 20140307, end: 20140821
  41. CERTICAN [Suspect]
     Active Substance: EVEROLIMUS
     Dosage: 1.5 MG, UNK
     Route: 048
     Dates: start: 20150421, end: 20150507
  42. CERTICAN [Suspect]
     Active Substance: EVEROLIMUS
     Dosage: 1.75 MG, UNK
     Route: 048
     Dates: start: 20150508
  43. PREDONINE [Suspect]
     Active Substance: PREDNISOLONE
     Indication: HEART TRANSPLANT
     Dosage: 12.5 MG, UNK
     Route: 048
     Dates: start: 20110328, end: 20110509
  44. PREDONINE [Suspect]
     Active Substance: PREDNISOLONE
     Dosage: 10.5 MG, UNK
     Route: 048
     Dates: start: 20110514, end: 20110523
  45. PREDONINE [Suspect]
     Active Substance: PREDNISOLONE
     Dosage: 20 MG, UNK
     Route: 048
     Dates: start: 20110606, end: 20110622
  46. CERTICAN [Suspect]
     Active Substance: EVEROLIMUS
     Dosage: 1.75 MG, QD
     Route: 048
     Dates: start: 20110826, end: 20110830
  47. CERTICAN [Suspect]
     Active Substance: EVEROLIMUS
     Dosage: 3.5 MG, QD
     Route: 048
     Dates: start: 20130111, end: 20130228
  48. CERTICAN [Suspect]
     Active Substance: EVEROLIMUS
     Dosage: 4 MG, QD
     Route: 048
     Dates: start: 20130329
  49. CERTICAN [Suspect]
     Active Substance: EVEROLIMUS
     Dosage: 4.25 MG, QD
     Route: 048
     Dates: start: 20130518, end: 20130802
  50. CERTICAN [Suspect]
     Active Substance: EVEROLIMUS
     Dosage: 5.0 MG, UNK
     Route: 048
     Dates: start: 20140822, end: 20141030
  51. PREDONINE [Suspect]
     Active Substance: PREDNISOLONE
     Dosage: 22.5 MG, UNK
     Route: 048
     Dates: start: 20110513, end: 20110513
  52. PROGRAF [Suspect]
     Active Substance: TACROLIMUS\TACROLIMUS ANHYDROUS
     Indication: PRODUCT USED FOR UNKNOWN INDICATION
     Dosage: 3.0 MG, UNK
     Route: 048
     Dates: start: 20130906, end: 20140514
  53. PROGRAF [Suspect]
     Active Substance: TACROLIMUS\TACROLIMUS ANHYDROUS
     Dosage: 2.2 MG, UNK
     Route: 048
     Dates: start: 20141031, end: 20141212
  54. PROGRAF [Suspect]
     Active Substance: TACROLIMUS\TACROLIMUS ANHYDROUS
     Dosage: 2.0 MG, UNK
     Route: 048
     Dates: start: 20150130, end: 20150305
  55. CELLCEPT [Concomitant]
     Active Substance: MYCOPHENOLATE MOFETIL\MYCOPHENOLATE MOFETIL HYDROCHLORIDE
     Indication: HEART TRANSPLANT
     Dosage: 250 MG, UNK
     Route: 048
     Dates: start: 20110402, end: 20110403
  56. LIPITOR [Concomitant]
     Active Substance: ATORVASTATIN CALCIUM
     Indication: PRODUCT USED FOR UNKNOWN INDICATION
     Dosage: 20 MG, UNK
     Route: 048
  57. THYRADIN S [Concomitant]
     Active Substance: LEVOTHYROXINE SODIUM
     Dosage: 50 UG, UNK
     Route: 048
  58. JANUVIA [Concomitant]
     Active Substance: SITAGLIPTIN PHOSPHATE
     Indication: PRODUCT USED FOR UNKNOWN INDICATION
     Dosage: 50 MG, UNK
     Route: 048
     Dates: start: 20110929
  59. TACROLIMUS. [Concomitant]
     Active Substance: TACROLIMUS
     Indication: PRODUCT USED FOR UNKNOWN INDICATION
     Dosage: UNK
     Route: 065
  60. CERTICAN [Suspect]
     Active Substance: EVEROLIMUS
     Dosage: 1 MG, UNK
     Route: 048
     Dates: start: 20110525, end: 20110530
  61. CERTICAN [Suspect]
     Active Substance: EVEROLIMUS
     Dosage: 1.5 MG, UNK
     Route: 048
     Dates: start: 20110607, end: 20110825
  62. CERTICAN [Suspect]
     Active Substance: EVEROLIMUS
     Dosage: 2 MG, UNK
     Route: 048
     Dates: start: 20110831, end: 20110902
  63. CERTICAN [Suspect]
     Active Substance: EVEROLIMUS
     Dosage: 0.5 MG, QD
     Route: 048
     Dates: start: 20110410, end: 20110523
  64. CERTICAN [Suspect]
     Active Substance: EVEROLIMUS
     Dosage: 1.5 MG, QD
     Route: 048
     Dates: start: 20110607, end: 20110825
  65. CERTICAN [Suspect]
     Active Substance: EVEROLIMUS
     Dosage: 2 MG, QD
     Route: 048
     Dates: start: 20111125, end: 20120112
  66. PREDONINE [Suspect]
     Active Substance: PREDNISOLONE
     Dosage: 17.5 MG, UNK
     Route: 048
     Dates: start: 20110623, end: 20110806
  67. PROGRAF [Suspect]
     Active Substance: TACROLIMUS\TACROLIMUS ANHYDROUS
     Dosage: 1 MG, UNK
     Route: 048
     Dates: end: 20150409
  68. LASIX [Concomitant]
     Active Substance: FUROSEMIDE
     Indication: PRODUCT USED FOR UNKNOWN INDICATION
     Dosage: 80 MG, UNK
     Route: 048
  69. THYRADIN S [Concomitant]
     Active Substance: LEVOTHYROXINE SODIUM
     Indication: HYPOTHYROIDISM
     Dosage: 25 UG, UNK
     Route: 048
     Dates: start: 20100511
  70. BAKTAR [Concomitant]
     Active Substance: SULFAMETHOXAZOLE\TRIMETHOPRIM
     Indication: ANTIFUNGAL PROPHYLAXIS
     Dosage: 1 DF, UNK
     Route: 048
     Dates: start: 20120321
  71. CERTICAN [Suspect]
     Active Substance: EVEROLIMUS
     Dosage: 2.5 MG, UNK
     Route: 048
     Dates: start: 20110903, end: 20111124
  72. CERTICAN [Suspect]
     Active Substance: EVEROLIMUS
     Dosage: 3 MG, QD
     Route: 048
     Dates: start: 20121109, end: 20121220
  73. CERTICAN [Suspect]
     Active Substance: EVEROLIMUS
     Dosage: 1.25 MG, QD
     Route: 048
     Dates: start: 20110531, end: 20110606
  74. CERTICAN [Suspect]
     Active Substance: EVEROLIMUS
     Dosage: 2.25 MG, QD
     Route: 048
     Dates: start: 20120113, end: 20120321
  75. CERTICAN [Suspect]
     Active Substance: EVEROLIMUS
     Dosage: 2.5 MG, QD
     Route: 048
     Dates: start: 20120322, end: 20120823
  76. CERTICAN [Suspect]
     Active Substance: EVEROLIMUS
     Dosage: 0.75 MG, UNK
     Route: 048
     Dates: start: 20150410, end: 20150410
  77. CERTICAN [Suspect]
     Active Substance: EVEROLIMUS
     Dosage: 1.25 MG, UNK
     Route: 048
     Dates: start: 20150418, end: 20150420
  78. PREDONINE [Suspect]
     Active Substance: PREDNISOLONE
     Dosage: 30 MG, UNK
     Route: 048
     Dates: start: 20110511, end: 20110512
  79. PREDONINE [Suspect]
     Active Substance: PREDNISOLONE
     Dosage: 10 MG, UNK
     Route: 048
     Dates: start: 20110524, end: 20110524
  80. PREDONINE [Suspect]
     Active Substance: PREDNISOLONE
     Dosage: 30 MG, UNK
     Route: 048
     Dates: start: 20110527, end: 20110531
  81. PREDONINE [Suspect]
     Active Substance: PREDNISOLONE
     Dosage: 25 MG, UNK
     Route: 048
     Dates: start: 20110601, end: 20110605
  82. PREDONINE [Suspect]
     Active Substance: PREDNISOLONE
     Dosage: 30 MG, UNK
     Route: 048
     Dates: start: 20110826, end: 20110830
  83. PREDONINE [Suspect]
     Active Substance: PREDNISOLONE
     Dosage: 25 MG, UNK
     Route: 048
     Dates: start: 20110831, end: 20110904
  84. PREDONINE [Suspect]
     Active Substance: PREDNISOLONE
     Dosage: 12.5 MG, UNK
     Route: 048
     Dates: start: 20111123, end: 20120419
  85. METHYLPREDNISOLONE. [Concomitant]
     Active Substance: METHYLPREDNISOLONE
     Indication: PRODUCT USED FOR UNKNOWN INDICATION
     Dosage: UNK
     Route: 065
  86. CERTICAN [Suspect]
     Active Substance: EVEROLIMUS
     Dosage: 0.5 MG, UNK
     Route: 048
     Dates: start: 20110410, end: 20110523
  87. CERTICAN [Suspect]
     Active Substance: EVEROLIMUS
     Dosage: 4.5 MG, QD
     Route: 048
     Dates: start: 20130803, end: 20130823
  88. CERTICAN [Suspect]
     Active Substance: EVEROLIMUS
     Dosage: 4.75 MG, UNK
     Route: 048
     Dates: start: 20141031, end: 20141218
  89. CERTICAN [Suspect]
     Active Substance: EVEROLIMUS
     Dosage: 4.5 MG, UNK
     Route: 048
     Dates: start: 20141219
  90. PROGRAF [Suspect]
     Active Substance: TACROLIMUS\TACROLIMUS ANHYDROUS
     Dosage: 2.0 MG, UNK
     Route: 048
     Dates: start: 20150130, end: 20150305
  91. PROGRAF [Suspect]
     Active Substance: TACROLIMUS\TACROLIMUS ANHYDROUS
     Dosage: 2.2 MG, UNK
     Route: 048
     Dates: start: 20141219, end: 20150129
  92. PROGRAF [Suspect]
     Active Substance: TACROLIMUS\TACROLIMUS ANHYDROUS
     Dosage: 1.2 MG, UNK
     Route: 048
     Dates: start: 20150411, end: 20150412
  93. STARSIS [Concomitant]
     Active Substance: NATEGLINIDE
     Indication: PRODUCT USED FOR UNKNOWN INDICATION
     Dosage: 270 MG, UNK
     Route: 048
     Dates: start: 20110623, end: 20110906

REACTIONS (15)
  - Heart transplant rejection [Recovered/Resolved]
  - Upper respiratory tract infection [Recovered/Resolved]
  - Diabetes mellitus [Not Recovered/Not Resolved]
  - Cataract [Recovered/Resolved]
  - Immunosuppressant drug level decreased [Unknown]
  - Enterocolitis [Recovering/Resolving]
  - Oedema peripheral [Recovered/Resolved]
  - White blood cell count decreased [Recovering/Resolving]
  - Heart transplant rejection [Recovered/Resolved]
  - Immunosuppressant drug level increased [Unknown]
  - Arthralgia [Not Recovered/Not Resolved]
  - Stomatitis [Recovered/Resolved]
  - Blood triglycerides increased [Unknown]
  - Impetigo [Recovered/Resolved]
  - Hypertension [Recovering/Resolving]

NARRATIVE: CASE EVENT DATE: 20110418
